FAERS Safety Report 4825683-3 (Version None)
Quarter: 2005Q4

REPORT INFORMATION
  Report Type: 
  Country: None (occurrence: None)
  Receive Date: 20051109
  Receipt Date: 20051021
  Transmission Date: 20060501
  Serious: Yes (Hospitalization)
  Sender: FDA-Public Use
  Company Number: 1839

PATIENT
  Sex: Female

DRUGS (1)
  1. AMNESTEEM [Suspect]
     Dosage: PO
     Route: 048
     Dates: start: 20040702, end: 20050301

REACTIONS (2)
  - MENTAL DISORDER [None]
  - PSYCHOTIC DISORDER [None]
